FAERS Safety Report 24203792 (Version 1)
Quarter: 2024Q3

REPORT INFORMATION
  Report Type: Report from Study
  Country: IN (occurrence: IN)
  Receive Date: 20240813
  Receipt Date: 20240813
  Transmission Date: 20241017
  Serious: Yes (Hospitalization)
  Sender: ROCHE
  Company Number: IN-ROCHE-3391756

PATIENT
  Age: 60 Year
  Sex: Female

DRUGS (1)
  1. TECENTRIQ [Suspect]
     Active Substance: ATEZOLIZUMAB
     Indication: Hepatocellular carcinoma
     Route: 041
     Dates: start: 20230613

REACTIONS (5)
  - Pyrexia [Unknown]
  - Jaundice [Unknown]
  - Cholangitis infective [Unknown]
  - Infection [Unknown]
  - Malaise [Unknown]
